FAERS Safety Report 9557026 (Version 1)
Quarter: 2013Q3

REPORT INFORMATION
  Report Type: Spontaneous
  Country: US (occurrence: US)
  Receive Date: 20130926
  Receipt Date: 20130926
  Transmission Date: 20140515
  Serious: Yes (Other)
  Sender: FDA-Public Use
  Company Number: US-TARO-2013P1013179

PATIENT
  Age: 8 Year
  Sex: Female
  Weight: 30.84 kg

DRUGS (1)
  1. MALATHION LOTION USP 0.5% [Suspect]
     Indication: LICE INFESTATION
     Route: 061
     Dates: start: 20130716, end: 20130716

REACTIONS (6)
  - Burning sensation [Not Recovered/Not Resolved]
  - Application site erythema [Not Recovered/Not Resolved]
  - Application site vesicles [Not Recovered/Not Resolved]
  - Skin discolouration [Not Recovered/Not Resolved]
  - Application site exfoliation [Not Recovered/Not Resolved]
  - Burns second degree [Not Recovered/Not Resolved]
